FAERS Safety Report 17167884 (Version 2)
Quarter: 2019Q4

REPORT INFORMATION
  Report Type: Spontaneous
  Country: CA (occurrence: CA)
  Receive Date: 20191218
  Receipt Date: 20191223
  Transmission Date: 20200122
  Serious: Yes (Hospitalization, Other)
  Sender: FDA-Public Use
  Company Number: CA-ORION CORPORATION ORION PHARMA-TREX2019-5968

PATIENT
  Age: 84 Year
  Sex: Female

DRUGS (2)
  1. FOLIC ACID. [Concomitant]
     Active Substance: FOLIC ACID
     Route: 065
  2. METHOTREXATE (TRADE NAME UNKNOWN) [Suspect]
     Active Substance: METHOTREXATE
     Indication: PRODUCT USED FOR UNKNOWN INDICATION
     Dosage: 4 MG WEEKLY ALTERNATING WITH 6 MG WEEKLY
     Route: 065

REACTIONS (7)
  - Hypertension [Unknown]
  - Blood sodium decreased [Unknown]
  - Blood cholesterol increased [Unknown]
  - Renal impairment [Unknown]
  - Diabetes mellitus [Unknown]
  - Internal haemorrhage [Unknown]
  - Urinary tract infection [Unknown]
